FAERS Safety Report 4674246-1 (Version None)
Quarter: 2005Q2

REPORT INFORMATION
  Report Type: 
  Country: None (occurrence: None)
  Receive Date: 20050524
  Receipt Date: 20050504
  Transmission Date: 20051028
  Serious: No
  Sender: FDA-Public Use
  Company Number: USA050597354

PATIENT
  Age: 50 Year
  Sex: Male

DRUGS (4)
  1. STRATTERA [Suspect]
     Dosage: 80 MG
     Dates: start: 20050101, end: 20050201
  2. SINGULAIR (MONTELUKAST) [Concomitant]
  3. ADVAIR [Concomitant]
  4. LEXAPRO [Concomitant]

REACTIONS (2)
  - ALANINE AMINOTRANSFERASE INCREASED [None]
  - ASPARTATE AMINOTRANSFERASE INCREASED [None]
